FAERS Safety Report 12657381 (Version 5)
Quarter: 2017Q1

REPORT INFORMATION
  Report Type: Spontaneous
  Country: US (occurrence: US)
  Receive Date: 20160816
  Receipt Date: 20170222
  Transmission Date: 20170428
  Serious: Yes (Death, Hospitalization, Other)
  Sender: FDA-Public Use
  Company Number: US-ALLERGAN-1665778US

PATIENT
  Age: 12 Year
  Sex: Male
  Weight: 68.27 kg

DRUGS (7)
  1. SUCRALFATE UNK [Suspect]
     Active Substance: SUCRALFATE
     Indication: PRODUCT USED FOR UNKNOWN INDICATION
     Dosage: UNK
  2. ALBUTEROL SULFATE. [Suspect]
     Active Substance: ALBUTEROL SULFATE
     Indication: ASTHMA
     Dosage: UNK
     Dates: start: 199609
  3. NASACORT [Suspect]
     Active Substance: TRIAMCINOLONE ACETONIDE
     Indication: PRODUCT USED FOR UNKNOWN INDICATION
     Dosage: UNK
     Route: 065
  4. PROVENTIL [Concomitant]
     Active Substance: ALBUTEROL
     Indication: ASTHMA
     Dosage: UNK
     Dates: start: 1989
  5. PREDNISONE. [Suspect]
     Active Substance: PREDNISONE
     Indication: PRODUCT USED FOR UNKNOWN INDICATION
     Dosage: UNK
     Route: 065
  6. AZMACORT [Suspect]
     Active Substance: TRIAMCINOLONE ACETONIDE
     Indication: PRODUCT USED FOR UNKNOWN INDICATION
     Dosage: UNK
     Route: 065
  7. DIAMOX SEQUELS [Concomitant]
     Active Substance: ACETAZOLAMIDE
     Indication: PYREXIA

REACTIONS (22)
  - Hypotension [Unknown]
  - Haematemesis [Unknown]
  - Asthma [Fatal]
  - Pyrexia [Unknown]
  - Lactic acidosis [Unknown]
  - Hyperphosphataemia [Unknown]
  - Hyperuricaemia [Unknown]
  - Anuria [Unknown]
  - Respiratory acidosis [Unknown]
  - Ecchymosis [Unknown]
  - Multiple organ dysfunction syndrome [Fatal]
  - Ileus paralytic [Unknown]
  - Bronchial hyperreactivity [Fatal]
  - Duodenal ulcer [Unknown]
  - Gastrointestinal haemorrhage [Fatal]
  - Septic shock [Fatal]
  - Tachycardia [Unknown]
  - Oedema peripheral [Unknown]
  - Respiratory failure [Fatal]
  - Gastrointestinal necrosis [Fatal]
  - Coagulopathy [Fatal]
  - Hyperkalaemia [Unknown]

NARRATIVE: CASE EVENT DATE: 1989
